FAERS Safety Report 23042700 (Version 2)
Quarter: 2023Q4

REPORT INFORMATION
  Report Type: Spontaneous
  Country: GB (occurrence: GB)
  Receive Date: 20231009
  Receipt Date: 20231030
  Transmission Date: 20240110
  Serious: Yes (Hospitalization, Other)
  Sender: FDA-Public Use
  Company Number: GB-GLENMARK PHARMACEUTICALS-2023GMK085205

PATIENT

DRUGS (2)
  1. PRAMIPEXOLE [Suspect]
     Active Substance: PRAMIPEXOLE
     Indication: Restless legs syndrome
     Dosage: 1 DOSAGE FORM, ONCE A DAY (1 TABLET PER DAY FOR THE FIRST 4 YEARS)
     Route: 065
  2. PRAMIPEXOLE [Suspect]
     Active Substance: PRAMIPEXOLE
     Dosage: 2 DOSAGE FORM, ONCE A DAY
     Route: 065
     Dates: end: 20230905

REACTIONS (3)
  - Blood cholesterol abnormal [Unknown]
  - Suicide attempt [Unknown]
  - Gambling disorder [Recovered/Resolved]

NARRATIVE: CASE EVENT DATE: 20230101
